FAERS Safety Report 17705021 (Version 1)
Quarter: 2020Q2

REPORT INFORMATION
  Report Type: Spontaneous
  Country: US (occurrence: US)
  Receive Date: 20200423
  Receipt Date: 20200423
  Transmission Date: 20200714
  Serious: Yes (Life-Threatening, Hospitalization)
  Sender: FDA-Public Use
  Company Number: None

PATIENT
  Age: 79 Year
  Sex: Male

DRUGS (3)
  1. WARFARIN WARFARIN NA (EXELAN) 10MG TAB) [Suspect]
     Active Substance: WARFARIN SODIUM
     Indication: MITRAL VALVE REPAIR
     Route: 048
     Dates: start: 20160628
  2. WARFARIN WARFARIN NA (EXELAN) 10MG TAB) [Suspect]
     Active Substance: WARFARIN SODIUM
     Indication: ATRIAL FIBRILLATION
     Route: 048
     Dates: start: 20160628
  3. NAPROXEN (NAPROXEN 500MG TAB) [Suspect]
     Active Substance: NAPROXEN
     Indication: PAIN
     Route: 048
     Dates: start: 20180328

REACTIONS (5)
  - Therapy interrupted [None]
  - Gastric haemorrhage [None]
  - Gastrointestinal haemorrhage [None]
  - Anticoagulation drug level above therapeutic [None]
  - Haemoglobin decreased [None]

NARRATIVE: CASE EVENT DATE: 20180424
